FAERS Safety Report 9311632 (Version 2)
Quarter: 2013Q2

REPORT INFORMATION
  Report Type: Spontaneous
  Country: IT (occurrence: IT)
  Receive Date: 20130528
  Receipt Date: 20130626
  Transmission Date: 20140414
  Serious: Yes (Hospitalization)
  Sender: FDA-Public Use
  Company Number: IT-OTSUKA-US-2013-10948

PATIENT
  Age: 18 Year
  Sex: Male

DRUGS (4)
  1. BUSULFEX [Suspect]
     Indication: EWING^S SARCOMA METASTATIC
     Dosage: 224 MG MILLIGRAM(S), QD
     Route: 042
     Dates: start: 20130316, end: 20130319
  2. ALKERAN [Concomitant]
     Indication: PRODUCT USED FOR UNKNOWN INDICATION
     Dosage: 240 MG MILLIGRAM(S), UNK
     Route: 042
     Dates: start: 20130320, end: 20130320
  3. ONDASETRON [Concomitant]
     Indication: PRODUCT USED FOR UNKNOWN INDICATION
     Dosage: 24 MG MILLIGRAM(S), UNK
     Route: 042
     Dates: start: 20130316, end: 20130321
  4. DESAMETASONE FOSF [Concomitant]
     Indication: PRODUCT USED FOR UNKNOWN INDICATION
     Dosage: 12 MG MILLIGRAM(S), UNK
     Route: 042
     Dates: start: 20130316, end: 20130321

REACTIONS (4)
  - Hepatic vein occlusion [Recovered/Resolved]
  - Ascites [Recovered/Resolved]
  - Hepatomegaly [Recovered/Resolved]
  - Hyperbilirubinaemia [Recovered/Resolved]
